FAERS Safety Report 20359172 (Version 1)
Quarter: 2022Q1

REPORT INFORMATION
  Report Type: Spontaneous
  Country: PR (occurrence: PR)
  Receive Date: 20220121
  Receipt Date: 20220121
  Transmission Date: 20220423
  Serious: Yes (Hospitalization)
  Sender: FDA-Public Use
  Company Number: PR-BIOVITRUM-2022PR00680

PATIENT
  Sex: Female

DRUGS (1)
  1. SYNAGIS [Suspect]
     Active Substance: PALIVIZUMAB
     Indication: Double outlet right ventricle
     Dosage: 89.7000 MONTHLY
     Route: 030
     Dates: start: 20210715

REACTIONS (1)
  - COVID-19 [Unknown]
